FAERS Safety Report 10230614 (Version 3)
Quarter: 2014Q3

REPORT INFORMATION
  Report Type: Spontaneous
  Country: US (occurrence: US)
  Receive Date: 20140611
  Receipt Date: 20140912
  Transmission Date: 20150326
  Serious: Yes (Other)
  Sender: FDA-Public Use
  Company Number: US-INCYTE CORPORATION-2014IN000901

PATIENT
  Age: 81 Year
  Sex: Male
  Weight: 70.5 kg

DRUGS (18)
  1. ALLOPURINOL. [Concomitant]
     Active Substance: ALLOPURINOL
  2. TYLENOL [Concomitant]
     Active Substance: ACETAMINOPHEN
  3. JAKAFI [Suspect]
     Active Substance: RUXOLITINIB
     Indication: MYELOFIBROSIS
     Dosage: 5 MG, QD
     Route: 048
     Dates: start: 20140317
  4. JAKAFI [Suspect]
     Active Substance: RUXOLITINIB
     Dosage: 5 MG, QD
     Route: 048
     Dates: start: 201405
  5. CARVEDILOL. [Concomitant]
     Active Substance: CARVEDILOL
  6. LENALIDOMIDE [Concomitant]
     Active Substance: LENALIDOMIDE
  7. PROTONIX [Concomitant]
     Active Substance: PANTOPRAZOLE SODIUM
  8. PROCRIT [Concomitant]
     Active Substance: ERYTHROPOIETIN
  9. REQUIP [Concomitant]
     Active Substance: ROPINIROLE HYDROCHLORIDE
  10. VICODIN [Concomitant]
     Active Substance: ACETAMINOPHEN\HYDROCODONE BITARTRATE
  11. THALIDOMIDE [Concomitant]
     Active Substance: THALIDOMIDE
  12. DEMADEX [Concomitant]
     Active Substance: TORSEMIDE
  13. VITAMIN D2 [Concomitant]
     Active Substance: ERGOCALCIFEROL
  14. GABAPENTIN. [Concomitant]
     Active Substance: GABAPENTIN
  15. SIMVASTATIN. [Concomitant]
     Active Substance: SIMVASTATIN
  16. EXJADE [Concomitant]
     Active Substance: DEFERASIROX
  17. MICRO-K [Concomitant]
     Active Substance: POTASSIUM CHLORIDE
  18. BENADRYL [Concomitant]
     Active Substance: DIPHENHYDRAMINE HYDROCHLORIDE

REACTIONS (10)
  - Dyspnoea exertional [Unknown]
  - Blood bilirubin increased [Unknown]
  - Splenomegaly [Unknown]
  - Platelet count decreased [Unknown]
  - Renal failure chronic [Not Recovered/Not Resolved]
  - Blood lactate dehydrogenase increased [Unknown]
  - Contusion [Unknown]
  - Epistaxis [Recovered/Resolved]
  - Anaemia [Unknown]
  - Leukocytosis [Unknown]

NARRATIVE: CASE EVENT DATE: 2014
